FAERS Safety Report 21302911 (Version 3)
Quarter: 2022Q4

REPORT INFORMATION
  Report Type: Spontaneous
  Country: US (occurrence: US)
  Receive Date: 20220907
  Receipt Date: 20221013
  Transmission Date: 20230113
  Serious: No
  Sender: FDA-Public Use
  Company Number: US-BAYER-2022A123109

PATIENT
  Age: 25 Year
  Sex: Female
  Weight: 46.259 kg

DRUGS (2)
  1. SKYLA [Suspect]
     Active Substance: LEVONORGESTREL
     Indication: Contraception
     Dosage: 14?G/DAY
     Route: 015
     Dates: start: 20181226
  2. DUPIXENT [Concomitant]
     Active Substance: DUPILUMAB

REACTIONS (8)
  - Abdominal distension [Recovered/Resolved]
  - Weight decreased [None]
  - Hereditary angioedema [None]
  - Swelling face [None]
  - Gastrointestinal inflammation [None]
  - Abdominal distension [None]
  - Gastric disorder [None]
  - Product use in unapproved indication [None]

NARRATIVE: CASE EVENT DATE: 20220319
